FAERS Safety Report 23699085 (Version 2)
Quarter: 2024Q2

REPORT INFORMATION
  Report Type: Spontaneous
  Country: CN (occurrence: CN)
  Receive Date: 20240402
  Receipt Date: 20240408
  Transmission Date: 20240716
  Serious: Yes (Other)
  Sender: FDA-Public Use
  Company Number: CN-009507513-2404CHN000180

PATIENT
  Age: 69 Year
  Sex: Male

DRUGS (15)
  1. KEYTRUDA [Suspect]
     Active Substance: PEMBROLIZUMAB
     Indication: Metastatic gastric cancer
     Dosage: 200 MILLIGRAM, Q3W
     Route: 042
     Dates: start: 202110
  2. KEYTRUDA [Suspect]
     Active Substance: PEMBROLIZUMAB
     Dosage: 200 MG, Q3W, CYCLE 4
     Route: 042
     Dates: start: 20211217
  3. KEYTRUDA [Suspect]
     Active Substance: PEMBROLIZUMAB
     Dosage: 200 MG, Q3W, CYCLE 5
     Route: 042
     Dates: start: 20220108
  4. KEYTRUDA [Suspect]
     Active Substance: PEMBROLIZUMAB
     Dosage: 200 MG, Q3W, CYCLE 6
     Route: 042
     Dates: start: 20220209
  5. KEYTRUDA [Suspect]
     Active Substance: PEMBROLIZUMAB
     Dosage: 200 MG, Q3W, CYCLE 7
     Route: 042
     Dates: start: 20220304
  6. KEYTRUDA [Suspect]
     Active Substance: PEMBROLIZUMAB
     Dosage: 200 MG, Q3W
     Route: 042
     Dates: start: 202203, end: 202309
  7. OXALIPLATIN [Suspect]
     Active Substance: OXALIPLATIN
     Indication: Metastatic gastric cancer
     Dosage: 200 MG
  8. OXALIPLATIN [Suspect]
     Active Substance: OXALIPLATIN
     Dosage: 100 MG, CYCLE 4
     Dates: start: 20211217
  9. OXALIPLATIN [Suspect]
     Active Substance: OXALIPLATIN
     Dosage: 100 MG, CYCLE 5
     Dates: start: 20220108
  10. OXALIPLATIN [Suspect]
     Active Substance: OXALIPLATIN
     Dosage: 100 MG, CYCLE 6
     Dates: start: 20220209
  11. OXALIPLATIN [Suspect]
     Active Substance: OXALIPLATIN
     Dosage: 100 MG, CYCLE 7
     Dates: start: 20220304
  12. CAPECITABINE [Suspect]
     Active Substance: CAPECITABINE
     Indication: Metastatic gastric cancer
     Dosage: 1500 MG
     Dates: start: 20211217
  13. CAPECITABINE [Suspect]
     Active Substance: CAPECITABINE
     Dosage: 1500 MG
     Dates: start: 20220108
  14. CAPECITABINE [Suspect]
     Active Substance: CAPECITABINE
     Dosage: 1500 MG
     Dates: start: 20220209
  15. CAPECITABINE [Suspect]
     Active Substance: CAPECITABINE
     Dosage: 1500 MG
     Dates: start: 20220304

REACTIONS (8)
  - Ascites [Recovered/Resolved]
  - Immune-mediated hepatic disorder [Recovered/Resolved]
  - Hepatitis viral [Recovered/Resolved]
  - Gamma-glutamyltransferase increased [Recovered/Resolved]
  - Blood bilirubin increased [Recovered/Resolved]
  - Blood alkaline phosphatase increased [Recovered/Resolved]
  - Product use in unapproved indication [Unknown]
  - Toxicity to various agents [Unknown]
